FAERS Safety Report 12506950 (Version 1)
Quarter: 2016Q2

REPORT INFORMATION
  Report Type: Spontaneous
  Country: US (occurrence: US)
  Receive Date: 20160629
  Receipt Date: 20160629
  Transmission Date: 20160815
  Serious: Yes (Other)
  Sender: FDA-Public Use
  Company Number: US-ALVOGEN-2016-ALVOGEN-025009

PATIENT
  Sex: Female
  Weight: 61.36 kg

DRUGS (2)
  1. TENORMIN [Suspect]
     Active Substance: ATENOLOL
     Indication: ARRHYTHMIA
     Route: 048
  2. TENORMIN [Suspect]
     Active Substance: ATENOLOL
     Indication: ARRHYTHMIA
     Route: 048

REACTIONS (2)
  - Heart rate decreased [Unknown]
  - Pulmonary fibrosis [Not Recovered/Not Resolved]
